FAERS Safety Report 16334080 (Version 1)
Quarter: 2019Q2

REPORT INFORMATION
  Report Type: Spontaneous
  Country: DE (occurrence: DE)
  Receive Date: 20190520
  Receipt Date: 20190520
  Transmission Date: 20190711
  Serious: Yes (Other)
  Sender: FDA-Public Use
  Company Number: DE-GUERBET-DE-20190053

PATIENT
  Sex: Female
  Weight: 76 kg

DRUGS (2)
  1. DOTAREM [Suspect]
     Active Substance: GADOTERATE MEGLUMINE
     Indication: PRODUCT USED FOR UNKNOWN INDICATION
     Route: 065
  2. PROHANCE [Suspect]
     Active Substance: GADOTERIDOL
     Indication: PRODUCT USED FOR UNKNOWN INDICATION
     Route: 065

REACTIONS (24)
  - Visual field defect [Unknown]
  - Arthralgia [Unknown]
  - Red blood cell count increased [Unknown]
  - Sensory disturbance [Unknown]
  - Poor peripheral circulation [Unknown]
  - Muscle disorder [Unknown]
  - Paraesthesia [Unknown]
  - Urinary tract infection [Unknown]
  - Reye^s syndrome [Unknown]
  - Lymphadenopathy [Unknown]
  - Dysphagia [Unknown]
  - Bone pain [Unknown]
  - Paresis [Unknown]
  - Petechiae [Unknown]
  - Disturbance in attention [Unknown]
  - White blood cell count increased [Unknown]
  - Nephrogenic systemic fibrosis [Unknown]
  - Gait disturbance [Unknown]
  - Paraesthesia oral [Unknown]
  - Fatigue [Unknown]
  - Dyspnoea [Unknown]
  - Paralysis [Unknown]
  - Sleep disorder [Unknown]
  - Micturition disorder [Unknown]
